FAERS Safety Report 18439632 (Version 1)
Quarter: 2020Q4

REPORT INFORMATION
  Report Type: Spontaneous
  Country: US (occurrence: US)
  Receive Date: 20201029
  Receipt Date: 20201029
  Transmission Date: 20210114
  Serious: Yes (Other)
  Sender: FDA-Public Use
  Company Number: NVSC2020US282352

PATIENT
  Sex: Male

DRUGS (4)
  1. SUTENT [Suspect]
     Active Substance: SUNITINIB MALATE
     Indication: PRODUCT USED FOR UNKNOWN INDICATION
     Dosage: ONE PILL FOR ONE WEEK
     Route: 065
  2. GLEEVEC [Suspect]
     Active Substance: IMATINIB MESYLATE
     Indication: PRODUCT USED FOR UNKNOWN INDICATION
     Route: 065
  3. SUTENT [Suspect]
     Active Substance: SUNITINIB MALATE
     Dosage: THREE PILLS FOR NEXT WEEK
     Route: 065
  4. SUTENT [Suspect]
     Active Substance: SUNITINIB MALATE
     Dosage: TWO PILLS FOR NEXT WEEK
     Route: 065

REACTIONS (8)
  - Muscle tightness [Unknown]
  - Coma [Unknown]
  - Swollen tongue [Unknown]
  - Dehydration [Unknown]
  - Paraesthesia oral [Unknown]
  - Angioedema [Unknown]
  - Pharyngeal swelling [Unknown]
  - Hypersensitivity [Unknown]
